FAERS Safety Report 6380944-4 (Version None)
Quarter: 2009Q3

REPORT INFORMATION
  Report Type: 
  Country: None (occurrence: None)
  Receive Date: 20090925
  Receipt Date: 20090925
  Transmission Date: 20100115
  Serious: Yes (Hospitalization)
  Sender: FDA-Public Use
  Company Number: None

PATIENT
  Sex: Female
  Weight: 111.2 kg

DRUGS (6)
  1. TAXOL [Suspect]
     Dosage: 960 MG
     Dates: end: 20090710
  2. HERCEPTIN [Suspect]
     Dates: end: 20090921
  3. LASIX [Concomitant]
  4. LOMOTIL [Concomitant]
  5. METOLAZONE [Concomitant]
  6. NEURONTIN [Concomitant]

REACTIONS (3)
  - ELECTROLYTE IMBALANCE [None]
  - HYPOKALAEMIA [None]
  - OEDEMA PERIPHERAL [None]
